FAERS Safety Report 17899894 (Version 1)
Quarter: 2020Q2

REPORT INFORMATION
  Report Type: Spontaneous
  Country: US (occurrence: US)
  Receive Date: 20200615
  Receipt Date: 20200615
  Transmission Date: 20200714
  Serious: Yes (Hospitalization)
  Sender: FDA-Public Use
  Company Number: None

PATIENT
  Age: 91 Year
  Sex: Female

DRUGS (1)
  1. IBRANCE [Suspect]
     Active Substance: PALBOCICLIB
     Indication: BREAST CANCER FEMALE
     Route: 048
     Dates: start: 20200224

REACTIONS (5)
  - Peripheral swelling [None]
  - Erythema [None]
  - Fall [None]
  - Spinal compression fracture [None]
  - Pain in extremity [None]

NARRATIVE: CASE EVENT DATE: 20200501
